FAERS Safety Report 7518534-X (Version None)
Quarter: 2011Q2

REPORT INFORMATION
  Report Type: 
  Country: None (occurrence: None)
  Receive Date: 20110602
  Receipt Date: 20110519
  Transmission Date: 20111010
  Serious: Yes (Death)
  Sender: FDA-Public Use
  Company Number: DE-MYLANLABS-2011S1010658

PATIENT
  Age: 75 Year
  Sex: Male

DRUGS (2)
  1. METHOTREXATE [Suspect]
     Indication: WEGENER'S GRANULOMATOSIS
     Route: 065
  2. LEFLUNOMIDE [Suspect]
     Indication: WEGENER'S GRANULOMATOSIS
     Route: 065

REACTIONS (1)
  - MYOCARDIAL INFARCTION [None]
